FAERS Safety Report 7796567-6 (Version None)
Quarter: 2011Q4

REPORT INFORMATION
  Report Type: 
  Country: None (occurrence: None)
  Receive Date: 20111005
  Receipt Date: 20110928
  Transmission Date: 20120403
  Serious: Yes (Other)
  Sender: FDA-Public Use
  Company Number: US-PFIZER INC-2009179978

PATIENT
  Sex: Female
  Weight: 73.9 kg

DRUGS (24)
  1. CHANTIX [Suspect]
     Dosage: UNK
     Dates: end: 20090301
  2. COMBIVENT [Concomitant]
     Indication: LUNG DISORDER
     Dosage: UNK,  2 PUFFS 4 TIMES A DAY
     Route: 055
  3. VITAMIN A [Concomitant]
     Dosage: UNK
  4. CHANTIX [Suspect]
     Indication: SMOKING CESSATION THERAPY
     Dosage: 0.5 MG, 1X/DAY
     Route: 048
     Dates: start: 20081101, end: 20080101
  5. CHANTIX [Suspect]
     Dosage: UNK
     Dates: start: 20090301
  6. PROAIR HFA [Concomitant]
     Dosage: UNK
  7. ATIVAN [Concomitant]
     Dosage: UNK
  8. SOMA [Concomitant]
     Indication: MUSCULOSKELETAL PAIN
     Dosage: 350 MG, 4X/DAY
     Route: 048
  9. VITAMIN E [Concomitant]
     Dosage: UNK
  10. LORTAB [Concomitant]
     Indication: JOINT INJURY
     Dosage: UNK
  11. SOMA [Concomitant]
     Indication: JOINT INJURY
  12. VENTOLIN HFA [Concomitant]
     Indication: LUNG DISORDER
     Dosage: 2 PUFFS 4 TIMES A DAY
     Route: 055
  13. NEXIUM [Concomitant]
     Dosage: UNK
  14. SYMBICORT [Concomitant]
     Dosage: UNK
  15. CHANTIX [Suspect]
     Dosage: 1 MG, 2X/DAY
     Route: 048
     Dates: start: 20080101
  16. CHANTIX [Suspect]
     Dosage: UNK
     Dates: start: 20090217, end: 20090101
  17. CHANTIX [Suspect]
     Dosage: 1 MG, 2X/DAY
     Dates: start: 20100101
  18. ACETYLSALICYLIC ACID [Concomitant]
     Dosage: 81 MG, UNK
  19. SPIRIVA [Concomitant]
     Indication: LUNG DISORDER
     Dosage: UNK, DAILY
     Route: 055
  20. SIMVASTATIN [Concomitant]
     Dosage: UNK
  21. CHANTIX [Suspect]
     Dosage: 1 MG, 2X/DAY
     Dates: start: 20090101, end: 20090101
  22. CHANTIX [Suspect]
     Dosage: 1 MG, 2X/DAY
  23. ADVAIR DISKUS 100/50 [Concomitant]
     Indication: LUNG DISORDER
     Dosage: UNK
     Route: 055
  24. FISH OIL [Concomitant]
     Dosage: UNK

REACTIONS (14)
  - COUGH [None]
  - DYSPEPSIA [None]
  - STRESS [None]
  - INTERSTITIAL LUNG DISEASE [None]
  - DYSPNOEA [None]
  - VOMITING [None]
  - FEELING ABNORMAL [None]
  - NAUSEA [None]
  - MALAISE [None]
  - DRUG INEFFECTIVE [None]
  - ABNORMAL DREAMS [None]
  - DYSGEUSIA [None]
  - TOBACCO USER [None]
  - ABNORMAL BEHAVIOUR [None]
